FAERS Safety Report 14413391 (Version 2)
Quarter: 2018Q1

REPORT INFORMATION
  Report Type: Spontaneous
  Country: DE (occurrence: DE)
  Receive Date: 20180119
  Receipt Date: 20180221
  Transmission Date: 20180509
  Serious: Yes (Other)
  Sender: FDA-Public Use
  Company Number: DE-MARINA BIOTECH, INC.-2018MARINA000494

PATIENT

DRUGS (1)
  1. VIACORAM NOS [Suspect]
     Active Substance: AMLODIPINE BESYLATE\PERINDOPRIL ARGININE
     Indication: HYPERTENSION
     Dosage: 1 DF, QD
     Route: 065
     Dates: start: 20171127, end: 20180109

REACTIONS (1)
  - Glaucoma [Recovered/Resolved]
